FAERS Safety Report 11368285 (Version 1)
Quarter: 2015Q3

REPORT INFORMATION
  Report Type: Spontaneous
  Country: US (occurrence: US)
  Receive Date: 20150811
  Receipt Date: 20150811
  Transmission Date: 20151125
  Serious: No
  Sender: FDA-Public Use
  Company Number: US-ELI_LILLY_AND_COMPANY-US201404007367

PATIENT
  Sex: Male

DRUGS (1)
  1. AXIRON [Suspect]
     Active Substance: TESTOSTERONE
     Indication: BLOOD TESTOSTERONE DECREASED
     Dosage: 60 MG, QD
     Route: 061
     Dates: start: 201302

REACTIONS (5)
  - Polycythaemia [Unknown]
  - Libido decreased [Recovered/Resolved]
  - Blood testosterone decreased [Recovered/Resolved]
  - Asthenia [Recovered/Resolved]
  - Red blood cell count increased [Unknown]
